FAERS Safety Report 18763089 (Version 1)
Quarter: 2021Q1

REPORT INFORMATION
  Report Type: Other
  Country: US (occurrence: US)
  Receive Date: 20210120
  Receipt Date: 20210120
  Transmission Date: 20210419
  Serious: Yes (Death, Other)
  Sender: FDA-Public Use
  Company Number: US-ROCHE-2749529

PATIENT
  Age: 73 Year
  Sex: Male

DRUGS (4)
  1. HEPARIN [Concomitant]
     Active Substance: HEPARIN SODIUM
     Indication: PRODUCT USED FOR UNKNOWN INDICATION
     Route: 065
  2. ACTILYSE [Suspect]
     Active Substance: ALTEPLASE
     Indication: COVID-19
     Dosage: 25 MG BOLUS OF TPA WAS GIVEN INTRAVENOUSLY OVER 2 HR,  FREQUENCY: 1, FREQUENCY UNIT: 809
     Route: 042
  3. ACTILYSE [Suspect]
     Active Substance: ALTEPLASE
     Indication: PERIPHERAL ARTERY THROMBOSIS
     Dosage: FOLLOWED BY A CONTINUOUS INFUSION OF 25 MG OVER THE FOLLOWING 22 HR FREQUENCY: 1, FREQUENCY UNIT: 80
     Route: 042
  4. ACTILYSE [Suspect]
     Active Substance: ALTEPLASE
     Indication: ACUTE RESPIRATORY DISTRESS SYNDROME

REACTIONS (4)
  - Intentional product use issue [Unknown]
  - Off label use [Unknown]
  - Acute kidney injury [Unknown]
  - Cor pulmonale acute [Fatal]
